FAERS Safety Report 8174728-4 (Version None)
Quarter: 2012Q1

REPORT INFORMATION
  Report Type: 
  Country: None (occurrence: None)
  Receive Date: 20120229
  Receipt Date: 20120209
  Transmission Date: 20120608
  Serious: Yes (Other)
  Sender: FDA-Public Use
  Company Number: JP-GLAXOSMITHKLINE-B0780958A

PATIENT
  Sex: Male

DRUGS (5)
  1. RELENZA [Suspect]
     Indication: INFLUENZA
     Dosage: 20MG PER DAY
     Route: 055
     Dates: start: 20120127, end: 20120128
  2. LIKMOSS [Concomitant]
     Route: 048
     Dates: start: 20120127, end: 20120205
  3. ACETAMINOPHEN [Concomitant]
     Indication: PYREXIA
     Route: 048
  4. HUSCODE [Concomitant]
     Indication: COUGH
     Dosage: 18IUAX PER DAY
     Route: 048
     Dates: start: 20120126, end: 20120205
  5. LIKMOSS [Concomitant]
     Indication: PRODUCT USED FOR UNKNOWN INDICATION
     Route: 048
     Dates: start: 20120126, end: 20120126

REACTIONS (4)
  - ABNORMAL BEHAVIOUR [None]
  - DELIRIUM [None]
  - NAUSEA [None]
  - VOMITING [None]
